FAERS Safety Report 13389497 (Version 6)
Quarter: 2018Q1

REPORT INFORMATION
  Report Type: Report from Study
  Country: IT (occurrence: IT)
  Receive Date: 20170331
  Receipt Date: 20180314
  Transmission Date: 20180508
  Serious: Yes (Hospitalization, Other)
  Sender: FDA-Public Use
  Company Number: IT-TAKEDA-2017MPI002742

PATIENT
  Age: 65 Year
  Sex: Male
  Weight: 74 kg

DRUGS (14)
  1. SYCREST [Concomitant]
     Active Substance: ASENAPINE MALEATE
     Dosage: 5 MG, QD
     Route: 065
  2. DEXAMETHASONE. [Suspect]
     Active Substance: DEXAMETHASONE
     Dosage: 40 MG, 1/WEEK
     Route: 048
     Dates: start: 20170119, end: 20170316
  3. MEPRAL                             /00661201/ [Concomitant]
     Active Substance: OMEPRAZOLE
     Dosage: 20 MG, QD
     Route: 065
  4. LORAZEPAM. [Concomitant]
     Active Substance: LORAZEPAM
     Dosage: 1 MG, BID
     Route: 065
  5. SELEPARINA [Concomitant]
     Active Substance: NADROPARIN CALCIUM
     Dosage: 0.4 IU, QD
     Route: 065
  6. BACTRIM [Concomitant]
     Active Substance: SULFAMETHOXAZOLE\TRIMETHOPRIM
     Dosage: UNK
     Route: 065
  7. ACYCLOVIR                          /00587301/ [Concomitant]
     Active Substance: ACYCLOVIR
     Dosage: 400 MG, BID
     Route: 065
  8. TELMISARTAN. [Concomitant]
     Active Substance: TELMISARTAN
     Dosage: 80 MG, QD
     Route: 065
  9. KATOXYN [Concomitant]
     Dosage: UNK
     Route: 065
  10. IXAZOMIB [Suspect]
     Active Substance: IXAZOMIB
     Indication: PLASMA CELL MYELOMA
     Dosage: 4 MG, UNK
     Route: 048
     Dates: start: 20170119, end: 20170316
  11. CYCLOPHOSPHAMIDE. [Suspect]
     Active Substance: CYCLOPHOSPHAMIDE
     Indication: PLASMA CELL MYELOMA
     Dosage: 300 MG/M2, UNK
     Route: 048
     Dates: start: 20170119, end: 20170316
  12. SERTRALINE [Concomitant]
     Active Substance: SERTRALINE HYDROCHLORIDE
     Dosage: 50 MG, QD
     Route: 065
  13. TRITTICO [Concomitant]
     Active Substance: TRAZODONE HYDROCHLORIDE
     Dosage: 25 GTT, QD
     Route: 065
  14. ARGENTUM METALLICUM [Concomitant]
     Dosage: UNK

REACTIONS (2)
  - Staphylococcal sepsis [Recovered/Resolved]
  - Pneumonia staphylococcal [Recovered/Resolved]

NARRATIVE: CASE EVENT DATE: 20170323
